FAERS Safety Report 7021101-8 (Version None)
Quarter: 2010Q3

REPORT INFORMATION
  Report Type: 
  Country: None (occurrence: None)
  Receive Date: 20100929
  Receipt Date: 20100916
  Transmission Date: 20110219
  Serious: Yes (Hospitalization, Other)
  Sender: FDA-Public Use
  Company Number: PHHY2010IT61659

PATIENT
  Sex: Female

DRUGS (3)
  1. COMBISARTAN [Suspect]
     Indication: HYPERTENSION
     Dosage: UNK
     Route: 048
     Dates: start: 20100821
  2. TRAZODONE HCL [Suspect]
     Indication: DEPRESSION
     Dosage: 75 MG DAILY
     Route: 048
     Dates: start: 20100805
  3. CARDURA [Concomitant]

REACTIONS (3)
  - DRUG TOXICITY [None]
  - HYPERTENSION [None]
  - SUICIDE ATTEMPT [None]
